FAERS Safety Report 7137587-4 (Version None)
Quarter: 2010Q4

REPORT INFORMATION
  Report Type: 
  Country: None (occurrence: None)
  Receive Date: 20101103
  Receipt Date: 20100513
  Transmission Date: 20110411
  Serious: Yes (Other)
  Sender: FDA-Public Use
  Company Number: 2010S1000272

PATIENT
  Sex: Male
  Weight: 86.8 kg

DRUGS (2)
  1. CUBICIN [Suspect]
     Indication: ENTEROCOCCAL INFECTION
     Dosage: 5.8 MG/KG;Q24H; IV
     Route: 042
     Dates: start: 20080321, end: 20080506
  2. MEROPENEM [Concomitant]

REACTIONS (1)
  - EOSINOPHIL COUNT INCREASED [None]
